FAERS Safety Report 7078243-0 (Version None)
Quarter: 2010Q4

REPORT INFORMATION
  Report Type: 
  Country: None (occurrence: None)
  Receive Date: 20101101
  Receipt Date: 20101101
  Transmission Date: 20110411
  Serious: Yes (Other)
  Sender: FDA-Public Use
  Company Number: None

PATIENT
  Age: 52 Year
  Sex: Female

DRUGS (2)
  1. LEVAQUIN 750 MG -TABLET- MFC: MCNEIL NOT SURE OF INJECT MFC.- [Suspect]
     Indication: PNEUMONIA
     Dosage: 750 MG - 150M ONCE DAILY - 5 DAYS INJECTED 750 MG ONCE DAILY - 7 DAYS TABLET
     Route: 042
     Dates: start: 20100719, end: 20100723
  2. LEVAQUIN 750 MG -TABLET- MFC: MCNEIL NOT SURE OF INJECT MFC.- [Suspect]
     Indication: PNEUMONIA
     Dosage: 750 MG - 150M ONCE DAILY - 5 DAYS INJECTED 750 MG ONCE DAILY - 7 DAYS TABLET
     Route: 042
     Dates: start: 20100724, end: 20100730

REACTIONS (6)
  - ARTHRALGIA [None]
  - GAIT DISTURBANCE [None]
  - MUSCULOSKELETAL PAIN [None]
  - PAIN IN EXTREMITY [None]
  - TENDON PAIN [None]
  - WALKING AID USER [None]
